FAERS Safety Report 10242505 (Version 1)
Quarter: 2014Q2

REPORT INFORMATION
  Report Type: Report from Study
  Country: US (occurrence: US)
  Receive Date: 20140617
  Receipt Date: 20140617
  Transmission Date: 20141212
  Serious: Yes (Other)
  Sender: FDA-Public Use
  Company Number: US-ABBVIE-14P-163-1245183-00

PATIENT
  Sex: Female

DRUGS (2)
  1. HUMIRA [Suspect]
     Indication: CROHN^S DISEASE
  2. AZATHIOPRINE [Concomitant]
     Indication: CROHN^S DISEASE

REACTIONS (6)
  - Abdominal adhesions [Unknown]
  - Dyspepsia [Unknown]
  - Abdominal pain [Recovering/Resolving]
  - Vomiting [Recovered/Resolved]
  - Constipation [Unknown]
  - Tinea infection [Unknown]
